FAERS Safety Report 6361773-4 (Version None)
Quarter: 2009Q3

REPORT INFORMATION
  Report Type: 
  Country: None (occurrence: None)
  Receive Date: 20090918
  Receipt Date: 20090109
  Transmission Date: 20100115
  Serious: No
  Sender: FDA-Public Use
  Company Number: US-TYCO HEALTHCARE/MALLINCKRODT-T200900038

PATIENT
  Sex: Female
  Weight: 53.288 kg

DRUGS (1)
  1. MD-GASTROVIEW [Suspect]
     Indication: COMPUTERISED TOMOGRAM
     Dosage: UNK
     Route: 048
     Dates: start: 20071001, end: 20071001

REACTIONS (7)
  - ABDOMINAL DISTENSION [None]
  - BLOOD URINE PRESENT [None]
  - CYSTITIS INTERSTITIAL [None]
  - ERUCTATION [None]
  - GASTROOESOPHAGEAL REFLUX DISEASE [None]
  - NAUSEA [None]
  - TONGUE COATED [None]
